FAERS Safety Report 5080225-5 (Version None)
Quarter: 2006Q3

REPORT INFORMATION
  Report Type: 
  Country: None (occurrence: None)
  Receive Date: 20060815
  Receipt Date: 20060804
  Transmission Date: 20061208
  Serious: Yes (Hospitalization)
  Sender: FDA-Public Use
  Company Number: US-JNJFOC-20060801749

PATIENT
  Sex: Female
  Weight: 72.58 kg

DRUGS (5)
  1. FENTANYL [Suspect]
     Indication: GASTROINTESTINAL STENOSIS
     Route: 062
  2. TOPROL-XL [Concomitant]
     Indication: CARDIAC DISORDER
     Route: 048
  3. ALLEGRA [Concomitant]
     Indication: PROPHYLAXIS
     Dosage: AT NIGHT
     Route: 048
  4. SINGULAIR [Concomitant]
     Indication: PROPHYLAXIS
     Dosage: AT NIGHT
     Route: 048
  5. NEXIUM [Concomitant]
     Indication: GASTRIC DISORDER
     Dosage: AT NIGHT
     Route: 048

REACTIONS (3)
  - ABDOMINAL PAIN [None]
  - COLON OPERATION [None]
  - CONSTIPATION [None]
